FAERS Safety Report 25979549 (Version 1)
Quarter: 2025Q4

REPORT INFORMATION
  Report Type: Spontaneous
  Country: GB (occurrence: GB)
  Receive Date: 20251030
  Receipt Date: 20251030
  Transmission Date: 20260118
  Serious: Yes (Death)
  Sender: KARYOPHARM THERAPEUTICS
  Company Number: GB-KARYOPHARM-2025KPT100879

PATIENT

DRUGS (1)
  1. SELINEXOR [Suspect]
     Active Substance: SELINEXOR
     Indication: Plasma cell myeloma refractory
     Dosage: 100 MG
     Route: 048

REACTIONS (1)
  - Death [Fatal]
